FAERS Safety Report 5171439-4 (Version None)
Quarter: 2006Q4

REPORT INFORMATION
  Report Type: 
  Country: None (occurrence: None)
  Receive Date: 20061205
  Receipt Date: 20061128
  Transmission Date: 20070319
  Serious: Yes (Death, Other)
  Sender: FDA-Public Use
  Company Number: 163-20785-06020287

PATIENT
  Age: 72 Year
  Sex: Male
  Weight: 64.8644 kg

DRUGS (5)
  1. THALOMID [Suspect]
     Indication: MULTIPLE MYELOMA
     Dosage: 100 MG, Q HS, ORAL
     Route: 048
     Dates: start: 20060203, end: 20060224
  2. PERCOCET [Concomitant]
  3. ATENOLOL [Concomitant]
  4. GLYBURIDE [Concomitant]
  5. WATER PILL (DIURETICS) [Concomitant]

REACTIONS (10)
  - ASTHENIA [None]
  - DECREASED APPETITE [None]
  - HAEMOPTYSIS [None]
  - LETHARGY [None]
  - MALIGNANT NEOPLASM PROGRESSION [None]
  - MULTIPLE MYELOMA [None]
  - PNEUMONIA [None]
  - SEPSIS [None]
  - SPEECH DISORDER [None]
  - WEIGHT DECREASED [None]
